FAERS Safety Report 6669187-4 (Version None)
Quarter: 2010Q2

REPORT INFORMATION
  Report Type: 
  Country: None (occurrence: None)
  Receive Date: 20100406
  Receipt Date: 20100325
  Transmission Date: 20101027
  Serious: Yes (Hospitalization)
  Sender: FDA-Public Use
  Company Number: FR-PFIZER INC-2010038141

PATIENT
  Age: 59 Year
  Sex: Male
  Weight: 95 kg

DRUGS (10)
  1. SUNITINIB MALATE [Suspect]
     Indication: HEPATIC NEOPLASM MALIGNANT RECURRENT
     Dosage: 37.5 MG, 1X/DAY
     Route: 048
     Dates: start: 20100303, end: 20100322
  2. KARDEGIC [Concomitant]
     Indication: ANTI-PLATELET ANTIBODY
     Dosage: 75 MG, 1X/DAY
  3. DILTIAZEM [Concomitant]
     Indication: HYPERTENSION
     Dosage: 200 MG, 1X/DAY
  4. OMEPRAZOLE [Concomitant]
     Indication: GASTROOESOPHAGEAL REFLUX DISEASE
     Dosage: 20 MG, 1X/DAY
  5. APROVEL [Concomitant]
     Indication: HYPERTENSION
     Dosage: 300 MG, 1X/DAY
  6. GLUCOPHAGE [Concomitant]
     Indication: DIABETES MELLITUS
     Dosage: 2000 MG, 2X/DAY
  7. PRAVASTATIN [Concomitant]
     Indication: HYPERLIPIDAEMIA
     Dosage: 20 MG, 1X/DAY
  8. VOGALENE [Concomitant]
     Indication: NAUSEA
     Dosage: 15 MG, 1X/DAY
     Dates: start: 20100312, end: 20100315
  9. FUNGIZONE [Concomitant]
     Indication: FUNGAL INFECTION
     Dosage: 250 MG, 2X/DAY
     Dates: start: 20100316
  10. SODIUM BICARBONATE [Concomitant]
     Dosage: TWO MOUTHWASH PER DAY
     Dates: start: 20100316

REACTIONS (1)
  - HEPATIC ENCEPHALOPATHY [None]
